FAERS Safety Report 7166778-1 (Version None)
Quarter: 2010Q4

REPORT INFORMATION
  Report Type: 
  Country: None (occurrence: None)
  Receive Date: 20101213
  Receipt Date: 20101213
  Transmission Date: 20110411
  Serious: Yes (Death, Life-Threatening)
  Sender: FDA-Public Use
  Company Number: None

PATIENT
  Age: 37 Day
  Sex: Male
  Weight: 2.4 kg

DRUGS (11)
  1. FLUCONAZOLE [Suspect]
     Indication: ANTIFUNGAL PROPHYLAXIS
     Dosage: 25 MG/KG IV WEEKLY
     Route: 042
     Dates: start: 20101204
  2. ALPROSTADIL [Concomitant]
  3. ZOSYN [Concomitant]
  4. FUROSEMIDE [Concomitant]
  5. HEPARIN [Concomitant]
  6. MIDAZOLAM HCL [Concomitant]
  7. MILRINONE [Concomitant]
  8. SPIRONOLACTONE [Concomitant]
  9. CHLOROTHIAZIDE [Concomitant]
  10. OMEPRAZOLE [Concomitant]
  11. FENTANYL [Concomitant]

REACTIONS (12)
  - BLOOD LACTIC ACID INCREASED [None]
  - CENTRAL VENOUS PRESSURE INCREASED [None]
  - ELECTROCARDIOGRAM ST SEGMENT ELEVATION [None]
  - HEART RATE DECREASED [None]
  - MEAN ARTERIAL PRESSURE DECREASED [None]
  - NO THERAPEUTIC RESPONSE [None]
  - PULSE PRESSURE DECREASED [None]
  - PUPIL FIXED [None]
  - VENTRICULAR ARRHYTHMIA [None]
  - VENTRICULAR DYSFUNCTION [None]
  - VENTRICULAR FIBRILLATION [None]
  - VENTRICULAR TACHYCARDIA [None]
